FAERS Safety Report 18099879 (Version 5)
Quarter: 2025Q4

REPORT INFORMATION
  Report Type: Spontaneous
  Country: US (occurrence: US)
  Receive Date: 20200731
  Receipt Date: 20251216
  Transmission Date: 20260117
  Serious: Yes (Hospitalization, Other)
  Sender: GILEAD
  Company Number: US-GILEAD-2020-0486601

PATIENT
  Age: 41 Year
  Sex: Female
  Weight: 108.84 kg

DRUGS (28)
  1. ATRIPLA [Suspect]
     Active Substance: EFAVIRENZ\EMTRICITABINE\TENOFOVIR DISOPROXIL FUMARATE
     Indication: HIV infection
     Dosage: UNK
     Route: 048
     Dates: start: 2007, end: 20160916
  2. ATRIPLA [Suspect]
     Active Substance: EFAVIRENZ\EMTRICITABINE\TENOFOVIR DISOPROXIL FUMARATE
     Dosage: UNK
     Route: 048
     Dates: start: 2008, end: 2017
  3. ATRIPLA [Suspect]
     Active Substance: EFAVIRENZ\EMTRICITABINE\TENOFOVIR DISOPROXIL FUMARATE
     Dosage: UNK
     Route: 048
     Dates: start: 20090318, end: 20161015
  4. GENVOYA [Concomitant]
     Active Substance: COBICISTAT\ELVITEGRAVIR\EMTRICITABINE\TENOFOVIR ALAFENAMIDE FUMARATE
  5. BIKTARVY [Concomitant]
     Active Substance: BICTEGRAVIR SODIUM\EMTRICITABINE\TENOFOVIR ALAFENAMIDE FUMARATE
  6. HYDROCODONE [Concomitant]
     Active Substance: HYDROCODONE
  7. ACETAMINOPHEN\OXYCODONE HYDROCHLORIDE\OXYCODONE TEREPHTHALATE [Concomitant]
     Active Substance: ACETAMINOPHEN\OXYCODONE HYDROCHLORIDE\OXYCODONE TEREPHTHALATE
  8. ALPRAZOLAM [Concomitant]
     Active Substance: ALPRAZOLAM
  9. ARIPIPRAZOLE [Concomitant]
     Active Substance: ARIPIPRAZOLE
  10. BUPROPION [Concomitant]
     Active Substance: BUPROPION
  11. CLONIDINE [Concomitant]
     Active Substance: CLONIDINE
  12. ALUMINUM HYDROXIDE\DICYCLOMINE HYDROCHLORIDE\MAGNESIUM OXIDE [Concomitant]
     Active Substance: ALUMINUM HYDROXIDE\DICYCLOMINE HYDROCHLORIDE\MAGNESIUM OXIDE
  13. DULOXETINE [Concomitant]
     Active Substance: DULOXETINE
  14. ESTRADIOL [Concomitant]
     Active Substance: ESTRADIOL
  15. FLUTICASONE [Concomitant]
     Active Substance: FLUTICASONE
  16. LEVOTHYROXINE [Concomitant]
     Active Substance: LEVOTHYROXINE
  17. LISINOPRIL [Concomitant]
     Active Substance: LISINOPRIL
  18. LYRICA [Concomitant]
     Active Substance: PREGABALIN
  19. MONTELUKAST [Concomitant]
     Active Substance: MONTELUKAST
  20. NABUMETONE [Concomitant]
     Active Substance: NABUMETONE
  21. OMEPRAZOLE [Concomitant]
     Active Substance: OMEPRAZOLE
  22. PREGABALIN [Concomitant]
     Active Substance: PREGABALIN
  23. RIZATRIPTAN [Concomitant]
     Active Substance: RIZATRIPTAN
  24. TOPIRAMATE [Concomitant]
     Active Substance: TOPIRAMATE
  25. VITAMIN D2 [Concomitant]
     Active Substance: ERGOCALCIFEROL
  26. XANAX [Concomitant]
     Active Substance: ALPRAZOLAM
  27. CYMBALTA [Concomitant]
     Active Substance: DULOXETINE HYDROCHLORIDE
  28. TRAZODONE [Concomitant]
     Active Substance: TRAZODONE HYDROCHLORIDE

REACTIONS (20)
  - Chronic kidney disease [Not Recovered/Not Resolved]
  - Ankle fracture [Not Recovered/Not Resolved]
  - Foot fracture [Not Recovered/Not Resolved]
  - Spinal fracture [Not Recovered/Not Resolved]
  - Osteopenia [Not Recovered/Not Resolved]
  - Renal impairment [Unknown]
  - Emotional distress [Not Recovered/Not Resolved]
  - Anhedonia [Not Recovered/Not Resolved]
  - Pain [Not Recovered/Not Resolved]
  - Anxiety [Not Recovered/Not Resolved]
  - Depression [Not Recovered/Not Resolved]
  - Stress [Not Recovered/Not Resolved]
  - Psychiatric symptom [Not Recovered/Not Resolved]
  - Acute kidney injury [Recovered/Resolved]
  - Multiple fractures [Unknown]
  - Thoracic vertebral fracture [Not Recovered/Not Resolved]
  - Lumbar vertebral fracture [Not Recovered/Not Resolved]
  - Hand fracture [Not Recovered/Not Resolved]
  - Bone density decreased [Unknown]
  - Tooth loss [Not Recovered/Not Resolved]

NARRATIVE: CASE EVENT DATE: 20111005
